FAERS Safety Report 9097075 (Version 1)
Quarter: 2013Q1

REPORT INFORMATION
  Report Type: Spontaneous
  Country: GB (occurrence: None)
  Receive Date: 20130123
  Receipt Date: 20130123
  Transmission Date: 20140127
  Serious: Yes (Other)
  Sender: FDA-Public Use
  Company Number: 1558512

PATIENT
  Age: 63 Year
  Sex: Male
  Weight: 27.22 kg

DRUGS (2)
  1. CALCIUM FOLINATE [Suspect]
     Indication: COLORECTAL CANCER METASTATIC
  2. IRINOTECAN HYDROCHLORIDE [Suspect]
     Indication: COLORECTAL CANCER METASTATIC

REACTIONS (9)
  - Transient ischaemic attack [None]
  - Pain in extremity [None]
  - Abdominal pain lower [None]
  - Pain in extremity [None]
  - Musculoskeletal stiffness [None]
  - Joint swelling [None]
  - Diarrhoea [None]
  - Abdominal tenderness [None]
  - Pain [None]
